FAERS Safety Report 7612062-9 (Version None)
Quarter: 2011Q3

REPORT INFORMATION
  Report Type: 
  Country: None (occurrence: None)
  Receive Date: 20110715
  Receipt Date: 20110705
  Transmission Date: 20111222
  Serious: Yes (Death, Other)
  Sender: FDA-Public Use
  Company Number: GB-ABBOTT-11P-167-0702118-00

PATIENT
  Sex: Male
  Weight: 89 kg

DRUGS (7)
  1. HUMIRA [Suspect]
     Indication: RHEUMATOID ARTHRITIS
     Route: 058
     Dates: start: 20060801, end: 20100401
  2. PREDNISOLONE [Concomitant]
     Indication: RHEUMATOID ARTHRITIS
     Route: 048
     Dates: start: 20030101, end: 20080801
  3. NIFEDIPINE [Concomitant]
     Indication: RAYNAUD'S PHENOMENON
     Route: 048
     Dates: start: 20100301, end: 20100801
  4. ALENDRONATE SODIUM [Concomitant]
     Indication: OSTEOPOROSIS
     Route: 048
     Dates: start: 20050101, end: 20100801
  5. LANSOPRAZOLE [Concomitant]
     Route: 048
     Dates: start: 20100801
  6. LANSOPRAZOLE [Concomitant]
     Indication: DYSPEPSIA
     Route: 048
     Dates: end: 20030101
  7. IMURAN [Suspect]
     Indication: PRODUCT USED FOR UNKNOWN INDICATION
     Route: 048
     Dates: start: 20100719, end: 20100927

REACTIONS (6)
  - PULMONARY FIBROSIS [None]
  - PNEUMONIA [None]
  - RHEUMATOID VASCULITIS [None]
  - CONDITION AGGRAVATED [None]
  - CEREBRAL INFARCTION [None]
  - CIRCULATORY COLLAPSE [None]
